FAERS Safety Report 23720283 (Version 1)
Quarter: 2024Q2

REPORT INFORMATION
  Report Type: Spontaneous
  Country: US (occurrence: US)
  Receive Date: 20240408
  Receipt Date: 20240408
  Transmission Date: 20240716
  Serious: No
  Sender: FDA-Public Use
  Company Number: US-PFIZER INC-PV202400045252

PATIENT
  Age: 80 Year
  Sex: Male

DRUGS (1)
  1. TALZENNA [Suspect]
     Active Substance: TALAZOPARIB TOSYLATE
     Dosage: TAKE 1 CAPSULE (0.35 MG) BY MOUTH ONCE DAILY WITH OR WITHOUT FOOD
     Route: 048

REACTIONS (1)
  - Fatigue [Unknown]
